FAERS Safety Report 5874874-1 (Version None)
Quarter: 2008Q3

REPORT INFORMATION
  Report Type: 
  Country: None (occurrence: None)
  Receive Date: 20080909
  Receipt Date: 20080826
  Transmission Date: 20090109
  Serious: Yes (Hospitalization, Other)
  Sender: FDA-Public Use
  Company Number: US-NOVOPROD-277831

PATIENT
  Sex: Male
  Weight: 61.3 kg

DRUGS (1)
  1. NORDITROPIN NORDIFLEX [Suspect]
     Indication: HAEMODIALYSIS
     Dosage: 1.3 MG, QD
     Route: 058
     Dates: start: 20071025, end: 20080707

REACTIONS (1)
  - PERITONITIS BACTERIAL [None]
